FAERS Safety Report 9622166 (Version 2)
Quarter: 2013Q4

REPORT INFORMATION
  Report Type: Report from Study
  Country: JP (occurrence: JP)
  Receive Date: 20131015
  Receipt Date: 20131015
  Transmission Date: 20140711
  Serious: Yes (Hospitalization, Other)
  Sender: FDA-Public Use
  Company Number: JP-CELGENEUS-087-50794-11070227

PATIENT
  Age: 80 Year
  Sex: Male

DRUGS (1)
  1. VIDAZA [Suspect]
     Indication: MYELODYSPLASTIC SYNDROME
     Dosage: 75 MILLIGRAM/SQ. METER
     Route: 065
     Dates: start: 20110620, end: 20110622

REACTIONS (5)
  - Skin mass [Recovering/Resolving]
  - Pyrexia [Recovering/Resolving]
  - Infection [Recovering/Resolving]
  - Erythema [Recovering/Resolving]
  - Pyrexia [Recovering/Resolving]
